FAERS Safety Report 22097679 (Version 3)
Quarter: 2023Q4

REPORT INFORMATION
  Report Type: Spontaneous
  Country: US (occurrence: US)
  Receive Date: 20230315
  Receipt Date: 20231024
  Transmission Date: 20240110
  Serious: No
  Sender: FDA-Public Use
  Company Number: US-PFIZER INC-PV202300045690

PATIENT
  Age: 75 Year
  Sex: Male

DRUGS (2)
  1. TIKOSYN [Suspect]
     Active Substance: DOFETILIDE
     Dosage: UNK
  2. DOFETILIDE [Suspect]
     Active Substance: DOFETILIDE
     Dosage: 500 UG, 2X/DAY (Q12H, EVERY 12 HOUR)

REACTIONS (2)
  - Gait disturbance [Unknown]
  - Impaired driving ability [Unknown]
